FAERS Safety Report 22307722 (Version 1)
Quarter: 2023Q2

REPORT INFORMATION
  Report Type: Spontaneous
  Country: US (occurrence: None)
  Receive Date: 20230511
  Receipt Date: 20230511
  Transmission Date: 20230722
  Serious: No
  Sender: FDA-Public Use
  Company Number: US-ROCHE-3141147

PATIENT
  Sex: Female
  Weight: 69.008 kg

DRUGS (2)
  1. OCREVUS [Suspect]
     Active Substance: OCRELIZUMAB
     Indication: Relapsing multiple sclerosis
     Dosage: FIRST TWO 300 MG INFUSIONS ;ONGOING: YES
     Route: 042
     Dates: start: 20220629
  2. AUBAGIO [Concomitant]
     Active Substance: TERIFLUNOMIDE
     Indication: Multiple sclerosis

REACTIONS (3)
  - Muscle spasms [Unknown]
  - Intermenstrual bleeding [Unknown]
  - Menstruation delayed [Unknown]
